FAERS Safety Report 9276322 (Version 3)
Quarter: 2014Q4

REPORT INFORMATION
  Report Type: Spontaneous
  Country: US (occurrence: US)
  Receive Date: 20130507
  Receipt Date: 20141209
  Transmission Date: 20150529
  Serious: Yes (Disabling, Other)
  Sender: FDA-Public Use
  Company Number: US-BAYER-2013-055084

PATIENT
  Age: 46 Year
  Sex: Female
  Weight: 62.59 kg

DRUGS (7)
  1. TOPAMAX [Concomitant]
     Active Substance: TOPIRAMATE
  2. YAZ [Suspect]
     Active Substance: DROSPIRENONE\ETHINYL ESTRADIOL
     Indication: MENSTRUAL CYCLE MANAGEMENT
     Dosage: UNK
     Dates: start: 2007, end: 201009
  3. TENORMIN [Concomitant]
     Active Substance: ATENOLOL
  4. YASMIN [Suspect]
     Active Substance: DROSPIRENONE\ETHINYL ESTRADIOL
  5. FISH OIL [Concomitant]
     Active Substance: FISH OIL
  6. PRAVACHOL [Concomitant]
     Active Substance: PRAVASTATIN SODIUM
  7. BEYAZ [Suspect]
     Active Substance: DROSPIRENONE\ETHINYL ESTRADIOL\LEVOMEFOLATE CALCIUM
     Indication: MENSTRUAL CYCLE MANAGEMENT
     Dosage: UNK
     Dates: start: 201009, end: 20120313

REACTIONS (6)
  - General physical health deterioration [None]
  - Pain in extremity [None]
  - Injury [None]
  - Cholecystitis chronic [None]
  - Peripheral swelling [None]
  - Deep vein thrombosis [None]

NARRATIVE: CASE EVENT DATE: 20120313
